FAERS Safety Report 5613990-6 (Version None)
Quarter: 2008Q1

REPORT INFORMATION
  Report Type: 
  Country: None (occurrence: None)
  Receive Date: 20080129
  Receipt Date: 20080121
  Transmission Date: 20080703
  Serious: Yes (Life-Threatening, Hospitalization)
  Sender: FDA-Public Use
  Company Number: THQ2008A00222

PATIENT
  Age: 65 Year
  Sex: Female

DRUGS (2)
  1. LANSOPRAZOLE [Suspect]
     Indication: ABDOMINAL DISCOMFORT
     Dosage: 15 MG 1 X PER 1 TOT PER ORAL
     Route: 048
     Dates: start: 20060627, end: 20070627
  2. NAPROXEN [Suspect]
     Indication: PAIN
     Dosage: 1000 MG (500 MG, 2 IN 1 D) PER ORAL
     Route: 048
     Dates: start: 20060627, end: 20070627

REACTIONS (4)
  - DEHYDRATION [None]
  - HEPATIC STEATOSIS [None]
  - NEPHROPATHY TOXIC [None]
  - RENAL FAILURE ACUTE [None]
